FAERS Safety Report 25014860 (Version 1)
Quarter: 2025Q1

REPORT INFORMATION
  Report Type: Spontaneous
  Country: DE (occurrence: DE)
  Receive Date: 20250226
  Receipt Date: 20250226
  Transmission Date: 20250409
  Serious: Yes (Other)
  Sender: BAYER HEALTHCARE PHARMACEUTICALS INC.
  Company Number: DE-BAYER-2025A025291

PATIENT
  Sex: Male

DRUGS (2)
  1. KERENDIA [Suspect]
     Active Substance: FINERENONE
  2. DAPAGLIFLOZIN [Concomitant]
     Active Substance: DAPAGLIFLOZIN

REACTIONS (2)
  - Blood pressure systolic increased [None]
  - Blood pressure diastolic increased [None]
